FAERS Safety Report 13288443 (Version 5)
Quarter: 2017Q3

REPORT INFORMATION
  Report Type: Report from Study
  Country: US (occurrence: US)
  Receive Date: 20170302
  Receipt Date: 20170721
  Transmission Date: 20171127
  Serious: Yes (Hospitalization)
  Sender: FDA-Public Use
  Company Number: US-ACTELION-A-US2015-129014

PATIENT
  Age: 76 Year
  Sex: Female
  Weight: 43.84 kg

DRUGS (4)
  1. VELETRI [Suspect]
     Active Substance: EPOPROSTENOL
     Indication: PULMONARY ARTERIAL HYPERTENSION
     Dosage: 17 NG/KG, PER MIN
     Route: 042
     Dates: start: 20150706
  2. OPSUMIT [Suspect]
     Active Substance: MACITENTAN
     Indication: PULMONARY ARTERIAL HYPERTENSION
     Dosage: 10 MG, QD
     Route: 048
     Dates: start: 20150929, end: 20170216
  3. TRACLEER [Concomitant]
     Active Substance: BOSENTAN
     Indication: PULMONARY ARTERIAL HYPERTENSION
     Dosage: UNK
     Route: 048
     Dates: start: 20170216
  4. VELETRI [Suspect]
     Active Substance: EPOPROSTENOL
     Dosage: 15 NG/KG, PER MIN
     Route: 042
     Dates: start: 20160504

REACTIONS (20)
  - Sepsis [Unknown]
  - Pulmonary arterial hypertension [Unknown]
  - Oropharyngeal pain [Unknown]
  - Cough [Unknown]
  - Device related infection [Recovered/Resolved]
  - Bacteraemia [Recovered/Resolved]
  - Normocytic anaemia [Recovered/Resolved]
  - Urinary tract infection [Recovered/Resolved]
  - Fatigue [Recovered/Resolved]
  - Pulmonary mass [Unknown]
  - Weight decreased [Recovering/Resolving]
  - Night sweats [Unknown]
  - Condition aggravated [Unknown]
  - Blood culture positive [Recovered/Resolved]
  - Night sweats [Recovered/Resolved]
  - Catheter management [Unknown]
  - Haemoglobin decreased [Recovered/Resolved]
  - Ear pain [Unknown]
  - Chills [Recovered/Resolved]
  - Dehydration [Unknown]

NARRATIVE: CASE EVENT DATE: 20160808
